FAERS Safety Report 14121976 (Version 1)
Quarter: 2017Q4

REPORT INFORMATION
  Report Type: Spontaneous
  Country: KR (occurrence: KR)
  Receive Date: 20171024
  Receipt Date: 20171024
  Transmission Date: 20180321
  Serious: Yes (Other)
  Sender: FDA-Public Use
  Company Number: KR-PFIZER INC-2016114760

PATIENT
  Age: 6 Month
  Sex: Female

DRUGS (3)
  1. VINCRISTINE SULFATE. [Suspect]
     Active Substance: VINCRISTINE SULFATE
     Indication: CONGENITAL RETINOBLASTOMA
     Dosage: 1.5 MG/M2,EVERY 3 WEEKS (FOR 1 D)
  2. ETOPOSIDE. [Suspect]
     Active Substance: ETOPOSIDE
     Indication: CONGENITAL RETINOBLASTOMA
     Dosage: 5 MG/KG,EVERY 3 WEEKS (FOR 2 D)
  3. CISPLATIN. [Suspect]
     Active Substance: CISPLATIN
     Indication: CONGENITAL RETINOBLASTOMA
     Dosage: 3 MG/KG, EVERY 3 WEEKS (FOR 1 D)

REACTIONS (1)
  - Febrile neutropenia [Unknown]
